FAERS Safety Report 11121749 (Version 2)
Quarter: 2015Q4

REPORT INFORMATION
  Report Type: Spontaneous
  Country: US (occurrence: US)
  Receive Date: 20150519
  Receipt Date: 20151112
  Transmission Date: 20160304
  Serious: Yes (Death, Other)
  Sender: FDA-Public Use
  Company Number: US-ASTRAZENECA-2015SE44622

PATIENT
  Age: 25938 Day
  Sex: Male
  Weight: 92.1 kg

DRUGS (35)
  1. PRINIVIL/ZESTRIL [Concomitant]
     Route: 048
     Dates: start: 20091112
  2. CYMBALTA [Concomitant]
     Active Substance: DULOXETINE HYDROCHLORIDE
     Dates: start: 20100304
  3. QUINAPRIL HYDROCHLORIDE. [Concomitant]
     Active Substance: QUINAPRIL HYDROCHLORIDE
     Dates: start: 20070501
  4. GLIPIZIDE/METFORMIN [Concomitant]
     Active Substance: GLIPIZIDE\METFORMIN HYDROCHLORIDE
     Dosage: 5/500 MG, TWO TIMES A DAY
     Dates: start: 20071003
  5. NEURONTIN [Concomitant]
     Active Substance: GABAPENTIN
     Route: 048
     Dates: start: 20120804
  6. GLUCOPHAGE XR [Concomitant]
     Active Substance: METFORMIN HYDROCHLORIDE
     Route: 048
  7. LEVAQUIN [Concomitant]
     Active Substance: LEVOFLOXACIN
     Dates: start: 20081124
  8. NABUMETONE. [Concomitant]
     Active Substance: NABUMETONE
     Dates: start: 20121010
  9. BYETTA [Suspect]
     Active Substance: EXENATIDE
     Dosage: 10 MCG/0.04
     Route: 065
     Dates: start: 20070702
  10. HYTRIN [Concomitant]
     Active Substance: TERAZOSIN HYDROCHLORIDE
     Dates: start: 20081113
  11. AVODART [Concomitant]
     Active Substance: DUTASTERIDE
     Dates: start: 20110705
  12. COLACE [Concomitant]
     Active Substance: DOCUSATE SODIUM
     Dates: start: 20140924
  13. PROMETHAZINE [Concomitant]
     Active Substance: PROMETHAZINE\PROMETHAZINE HYDROCHLORIDE
  14. METHYLPREDNISOLONE. [Concomitant]
     Active Substance: METHYLPREDNISOLONE
     Dates: start: 20080612
  15. MELOXICAM. [Concomitant]
     Active Substance: MELOXICAM
     Dates: start: 20090401
  16. ZOCOR [Concomitant]
     Active Substance: SIMVASTATIN
     Route: 048
     Dates: start: 20081208
  17. LORTAB [Concomitant]
     Active Substance: ACETAMINOPHEN\HYDROCODONE BITARTRATE
     Dosage: 5-500 MG, EVERY SIX HOURS
     Route: 048
     Dates: start: 20130430
  18. BENZONATATE. [Concomitant]
     Active Substance: BENZONATATE
     Dates: start: 20090106
  19. ONDANSETRON [Concomitant]
     Active Substance: ONDANSETRON
     Dates: start: 20140902
  20. VICTOZA [Suspect]
     Active Substance: LIRAGLUTIDE
     Route: 065
     Dates: start: 20121101, end: 20130131
  21. VITAMIN D [Concomitant]
     Active Substance: CHOLECALCIFEROL
     Route: 048
     Dates: start: 20140609
  22. PROSCAR [Concomitant]
     Active Substance: FINASTERIDE
     Dates: start: 20130208
  23. TOPROL XL [Concomitant]
     Active Substance: METOPROLOL SUCCINATE
     Dates: start: 20110705
  24. LYRICA [Concomitant]
     Active Substance: PREGABALIN
     Dates: start: 20070507
  25. VICTOZA [Suspect]
     Active Substance: LIRAGLUTIDE
     Dosage: 18 MG/3ML, DAILY
     Route: 058
     Dates: start: 20121101
  26. ASPIRIN. [Concomitant]
     Active Substance: ASPIRIN
  27. PRILOSEC [Concomitant]
     Active Substance: OMEPRAZOLE MAGNESIUM
     Dates: start: 20130426
  28. PLAVIX [Concomitant]
     Active Substance: CLOPIDOGREL BISULFATE
     Dates: start: 20110705
  29. NITROSTAT [Concomitant]
     Active Substance: NITROGLYCERIN
     Route: 060
     Dates: start: 20110705
  30. VITAMIN B12 [Concomitant]
     Active Substance: CYANOCOBALAMIN
     Dates: start: 20140924
  31. ROPINIROLE HYDROCHLORIDE. [Concomitant]
     Active Substance: ROPINIROLE HYDROCHLORIDE
     Dates: start: 20090224
  32. MORPHINE SULFATE. [Concomitant]
     Active Substance: MORPHINE SULFATE
     Dates: start: 20130522
  33. BYETTA [Suspect]
     Active Substance: EXENATIDE
     Route: 065
     Dates: start: 20070702, end: 20120713
  34. ACTOS [Concomitant]
     Active Substance: PIOGLITAZONE HYDROCHLORIDE
     Dates: start: 20081002
  35. GLUCOTROL [Concomitant]
     Active Substance: GLIPIZIDE
     Route: 048
     Dates: start: 20100326

REACTIONS (1)
  - Pancreatic carcinoma stage III [Fatal]

NARRATIVE: CASE EVENT DATE: 20130514
